FAERS Safety Report 9375044 (Version 2)
Quarter: 2013Q3

REPORT INFORMATION
  Report Type: Spontaneous
  Country: DE (occurrence: DE)
  Receive Date: 20130628
  Receipt Date: 20130715
  Transmission Date: 20140515
  Serious: Yes (Death, Hospitalization)
  Sender: FDA-Public Use
  Company Number: DE-JNJFOC-20130617673

PATIENT
  Age: 74 Year
  Sex: Female

DRUGS (6)
  1. XARELTO [Suspect]
     Indication: PRODUCT USED FOR UNKNOWN INDICATION
     Route: 048
     Dates: start: 20130506
  2. HYDROCHLOROTHIAZID [Concomitant]
     Indication: HYPERTENSION
     Route: 065
  3. AMIODARON [Concomitant]
     Indication: HYPERTENSION
     Route: 065
  4. BISOPROLOL [Concomitant]
     Indication: HYPERTENSION
     Route: 065
  5. RAMIPRIL [Concomitant]
     Indication: HYPERTENSION
     Route: 065
  6. ENOXAPARIN [Concomitant]
     Indication: ANTICOAGULANT THERAPY
     Route: 065

REACTIONS (2)
  - Blood potassium abnormal [Fatal]
  - Dyspnoea [Fatal]
